FAERS Safety Report 6262857-1 (Version None)
Quarter: 2009Q3

REPORT INFORMATION
  Report Type: 
  Country: None (occurrence: None)
  Receive Date: 20090709
  Receipt Date: 20090629
  Transmission Date: 20100115
  Serious: Yes (Hospitalization)
  Sender: FDA-Public Use
  Company Number: JP-GILEAD-E2B_00000334

PATIENT
  Sex: Female

DRUGS (2)
  1. AMBRISENTAN [Suspect]
     Indication: PULMONARY ARTERIAL HYPERTENSION
     Dosage: 10MG UNKNOWN
     Route: 048
     Dates: start: 20080409
  2. LUPRAC [Suspect]
     Indication: PULMONARY ARTERIAL HYPERTENSION
     Dosage: 12MG PER DAY
     Route: 048
     Dates: start: 20090606

REACTIONS (4)
  - DEHYDRATION [None]
  - HEPATIC ENCEPHALOPATHY [None]
  - LOSS OF CONSCIOUSNESS [None]
  - SYSTEMIC LUPUS ERYTHEMATOSUS [None]
